FAERS Safety Report 4389287-1 (Version None)
Quarter: 2004Q2

REPORT INFORMATION
  Report Type: 
  Country: None (occurrence: None)
  Receive Date: 20040628
  Receipt Date: 20040615
  Transmission Date: 20050107
  Serious: Yes (Hospitalization)
  Sender: FDA-Public Use
  Company Number: 2002-08-0111

PATIENT
  Age: 13 Year
  Sex: Female

DRUGS (8)
  1. THALOMID [Suspect]
     Indication: JUVENILE ARTHRITIS
     Dosage: 50 MG, QD, ORAL
     Route: 048
     Dates: start: 20020401, end: 20020801
  2. FOLIC ACID [Concomitant]
  3. PRILOSEC [Concomitant]
  4. METHADONE HCL [Concomitant]
  5. TYLENOL [Concomitant]
  6. PLAQUENIL [Concomitant]
  7. METHOTREXATE [Concomitant]
  8. SOLU-MEDROL [Concomitant]

REACTIONS (2)
  - BENIGN INTRACRANIAL HYPERTENSION [None]
  - PAPILLOEDEMA [None]
